FAERS Safety Report 9526802 (Version 1)
Quarter: 2013Q3

REPORT INFORMATION
  Report Type: Spontaneous
  Country: BE (occurrence: BE)
  Receive Date: 20130916
  Receipt Date: 20130916
  Transmission Date: 20140515
  Serious: Yes (Other)
  Sender: FDA-Public Use
  Company Number: BE-GLAXOSMITHKLINE-B0921608A

PATIENT
  Age: 55 Year
  Sex: Female

DRUGS (2)
  1. FRAXIPARINE [Suspect]
     Indication: PRODUCT USED FOR UNKNOWN INDICATION
     Route: 065
  2. ARIXTRA [Suspect]
     Indication: PRODUCT USED FOR UNKNOWN INDICATION
     Route: 065

REACTIONS (5)
  - Anaphylactic shock [Unknown]
  - Nonspecific reaction [Unknown]
  - Skin reaction [Unknown]
  - Mastocytosis [Unknown]
  - Drug hypersensitivity [Unknown]
